FAERS Safety Report 17524162 (Version 1)
Quarter: 2020Q1

REPORT INFORMATION
  Report Type: Spontaneous
  Country: US (occurrence: US)
  Receive Date: 20200302
  Receipt Date: 20200302
  Transmission Date: 20200409
  Serious: Yes (Life-Threatening, Hospitalization, Disabling)
  Sender: FDA-Public Use
  Company Number: None

PATIENT
  Age: 61 Year
  Sex: Female
  Weight: 75.3 kg

DRUGS (10)
  1. CITALOPRAM [Concomitant]
     Active Substance: CITALOPRAM HYDROBROMIDE
  2. VENLAFAXINE HYDROCHLORIDE EXTENDED RELEASE CAPSULES USP 750MG [Suspect]
     Active Substance: VENLAFAXINE HYDROCHLORIDE
     Indication: ANXIETY
     Dosage: ?          QUANTITY:2 CAPS DAILY;?
     Route: 048
     Dates: start: 20191008, end: 20200219
  3. MELOXICAM 15 MG [Concomitant]
     Active Substance: MELOXICAM
  4. OMEPRAZOLE 20 MG [Concomitant]
     Active Substance: OMEPRAZOLE
  5. RIBERLAX, 625 MF 2 DAILY [Concomitant]
  6. METOPROLOL XL 50MG [Concomitant]
  7. MORVASC 5 MG [Concomitant]
  8. VENLAFAXINE HYDROCHLORIDE EXTENDED RELEASE CAPSULES USP 750MG [Suspect]
     Active Substance: VENLAFAXINE HYDROCHLORIDE
     Indication: MEMORY IMPAIRMENT
     Dosage: ?          QUANTITY:2 CAPS DAILY;?
     Route: 048
     Dates: start: 20191008, end: 20200219
  9. VENLAFAXINE HYDROCHLORIDE EXTENDED RELEASE CAPSULES USP 750MG [Suspect]
     Active Substance: VENLAFAXINE HYDROCHLORIDE
     Indication: DEPRESSION
     Dosage: ?          QUANTITY:2 CAPS DAILY;?
     Route: 048
     Dates: start: 20191008, end: 20200219
  10. CHOLECALCIFEROL 2000 UNITS [Concomitant]

REACTIONS (17)
  - Nausea [None]
  - Anxiety [None]
  - Dry mouth [None]
  - Malaise [None]
  - Loss of personal independence in daily activities [None]
  - Dizziness [None]
  - Vomiting [None]
  - Paraesthesia [None]
  - Fear [None]
  - Headache [None]
  - Feeling cold [None]
  - Blood pressure increased [None]
  - Photophobia [None]
  - Movement disorder [None]
  - Urinary retention [None]
  - Feeling abnormal [None]
  - Chest pain [None]

NARRATIVE: CASE EVENT DATE: 20200117
